FAERS Safety Report 4357953-X (Version None)
Quarter: 2004Q2

REPORT INFORMATION
  Report Type: 
  Country: None (occurrence: None)
  Receive Date: 20040510
  Receipt Date: 20040420
  Transmission Date: 20050107
  Serious: Yes (Hospitalization)
  Sender: FDA-Public Use
  Company Number: F01200400282

PATIENT
  Age: 62 Year
  Sex: Male

DRUGS (3)
  1. ALFUZOSI - TABLET PR - 10 MG [Suspect]
     Indication: BENIGN PROSTATIC HYPERPLASIA
     Dosage: 10 MG OD
     Route: 048
     Dates: start: 20030814, end: 20031230
  2. VALIUM [Concomitant]
  3. PROSCAR [Concomitant]

REACTIONS (1)
  - TRANSURETHRAL PROSTATECTOMY [None]
